FAERS Safety Report 10487311 (Version 1)
Quarter: 2014Q4

REPORT INFORMATION
  Report Type: Spontaneous
  Country: SE (occurrence: SE)
  Receive Date: 20141001
  Receipt Date: 20141001
  Transmission Date: 20150528
  Serious: Yes (Other)
  Sender: FDA-Public Use
  Company Number: SE-PFIZER INC-2014267402

PATIENT
  Age: 61 Year
  Sex: Female

DRUGS (15)
  1. SUBCUVIA [Concomitant]
     Active Substance: HUMAN IMMUNOGLOBULIN G
  2. VAGIFEM [Concomitant]
     Active Substance: ESTRADIOL
  3. ISOPTIN [Concomitant]
     Active Substance: VERAPAMIL HYDROCHLORIDE
  4. RINEXIN [Concomitant]
     Active Substance: PHENYLPROPANOLAMINE
  5. SALAZOPYRIN [Suspect]
     Active Substance: SULFASALAZINE
     Indication: ARTHRALGIA
     Dosage: 1000 MG, 2X/DAY
     Route: 048
     Dates: start: 20110629, end: 20140805
  6. RHINOCORT [Concomitant]
     Active Substance: BUDESONIDE
  7. SINGULAIR [Concomitant]
     Active Substance: MONTELUKAST SODIUM
  8. HIZENTRA [Concomitant]
     Active Substance: HUMAN IMMUNOGLOBULIN G
  9. PREDNISOLONE. [Concomitant]
     Active Substance: PREDNISOLONE
  10. KALEORID [Concomitant]
     Active Substance: POTASSIUM CHLORIDE
  11. ALLOPURINOL. [Concomitant]
     Active Substance: ALLOPURINOL
  12. BECLOMET [Concomitant]
  13. CETIRIZINE [Concomitant]
     Active Substance: CETIRIZINE HYDROCHLORIDE
  14. SEREVENT [Concomitant]
     Active Substance: SALMETEROL XINAFOATE
  15. THEO-DUR [Concomitant]
     Active Substance: THEOPHYLLINE ANHYDROUS

REACTIONS (1)
  - Hypogammaglobulinaemia [Recovered/Resolved]

NARRATIVE: CASE EVENT DATE: 20140304
